FAERS Safety Report 13166407 (Version 1)
Quarter: 2017Q1

REPORT INFORMATION
  Report Type: Report from Study
  Country: US (occurrence: US)
  Receive Date: 20170131
  Receipt Date: 20170131
  Transmission Date: 20170428
  Serious: Yes (Death, Other)
  Sender: FDA-Public Use
  Company Number: US-ROCHE-1887085

PATIENT

DRUGS (3)
  1. SOFOSBUVIR [Suspect]
     Active Substance: SOFOSBUVIR
     Indication: HEPATITIS C VIRUS TEST POSITIVE
     Route: 048
  2. SIMEPREVIR [Suspect]
     Active Substance: SIMEPREVIR
     Indication: HEPATITIS C VIRUS TEST POSITIVE
     Route: 048
  3. RIBAVIRIN. [Suspect]
     Active Substance: RIBAVIRIN
     Indication: HEPATITIS C VIRUS TEST POSITIVE
     Dosage: ADMINISTERED ACCORDING TO BODY WEIGHT ({75 KG, 1000 MG/DAY IN 2 DIVIDED DOSES; }/=75 KG, 1200 MG/DAY
     Route: 048

REACTIONS (16)
  - Hypervolaemia [Unknown]
  - Mesenteric vein thrombosis [Unknown]
  - Hyperglycaemia [Unknown]
  - Malnutrition [Unknown]
  - Cirrhosis alcoholic [Unknown]
  - Syncope [Unknown]
  - Bile duct stone [Unknown]
  - Cholelithiasis [Unknown]
  - Acute respiratory failure [Unknown]
  - Vomiting [Unknown]
  - Small intestinal obstruction [Unknown]
  - Hepatocellular carcinoma [Unknown]
  - Ascites [Unknown]
  - Death [Fatal]
  - Oesophageal varices haemorrhage [Unknown]
  - Colitis [Unknown]
